FAERS Safety Report 4784776-X (Version None)
Quarter: 2005Q3

REPORT INFORMATION
  Report Type: 
  Country: None (occurrence: None)
  Receive Date: 20050928
  Receipt Date: 20050912
  Transmission Date: 20060218
  Serious: Yes (Other)
  Sender: FDA-Public Use
  Company Number: US_0504115668

PATIENT
  Age: 32 Year
  Sex: Female
  Weight: 72 kg

DRUGS (7)
  1. ZYPREXA [Suspect]
     Indication: DEPRESSION
     Dosage: 10 MG DAY
     Dates: start: 20001201, end: 20041019
  2. RISPERIDONE [Concomitant]
  3. VENLAFAXINE [Concomitant]
  4. ALPRAZOLAM [Concomitant]
  5. RIZATRIPTAN [Concomitant]
  6. SUCRALFATE [Concomitant]
  7. LANSOPRAZOLE [Concomitant]

REACTIONS (4)
  - CHOLECYSTECTOMY [None]
  - DIABETES MELLITUS [None]
  - HYPERTENSION [None]
  - WEIGHT INCREASED [None]
